FAERS Safety Report 10616011 (Version 2)
Quarter: 2015Q1

REPORT INFORMATION
  Report Type: Spontaneous
  Country: US (occurrence: US)
  Receive Date: 20141201
  Receipt Date: 20150227
  Transmission Date: 20150720
  Serious: Yes (Other)
  Sender: FDA-Public Use
  Company Number: US-ASTRAZENECA-2014SE88280

PATIENT
  Age: 53 Year
  Sex: Female
  Weight: 97.5 kg

DRUGS (8)
  1. BREO ELLIPTA [Concomitant]
     Active Substance: FLUTICASONE FUROATE\VILANTEROL TRIFENATATE
     Indication: BRONCHITIS
  2. SYMBICORT [Suspect]
     Active Substance: BUDESONIDE\FORMOTEROL FUMARATE DIHYDRATE
     Indication: BRONCHIAL DISORDER
     Route: 055
     Dates: start: 201410
  3. TRIBULANTIN [Concomitant]
     Indication: ASTHMA
  4. LISINOPRIL. [Suspect]
     Active Substance: LISINOPRIL
     Indication: HYPERTENSION
     Route: 048
  5. TRIBULANTIN [Concomitant]
     Indication: BRONCHITIS
  6. BREO ELLIPTA [Concomitant]
     Active Substance: FLUTICASONE FUROATE\VILANTEROL TRIFENATATE
     Indication: ASTHMA
  7. BURBUTILLANE SULFATE [Concomitant]
  8. FLONASE [Concomitant]
     Active Substance: FLUTICASONE PROPIONATE
     Indication: NOSE DEFORMITY

REACTIONS (6)
  - Ear disorder [Unknown]
  - Asthma [Unknown]
  - Drug ineffective for unapproved indication [Recovering/Resolving]
  - Drug hypersensitivity [Recovered/Resolved]
  - Face oedema [Unknown]
  - Intentional product misuse [Recovering/Resolving]

NARRATIVE: CASE EVENT DATE: 2011
